FAERS Safety Report 17596875 (Version 1)
Quarter: 2020Q1

REPORT INFORMATION
  Report Type: Report from Study
  Country: US (occurrence: US)
  Receive Date: 20200330
  Receipt Date: 20200330
  Transmission Date: 20200409
  Serious: Yes (Other)
  Sender: FDA-Public Use
  Company Number: US-AUROBINDO-AUR-APL-2020-015902

PATIENT
  Age: 25 Year
  Sex: Male
  Weight: 59 kg

DRUGS (1)
  1. POLYMYXIN B. [Suspect]
     Active Substance: POLYMYXIN B
     Indication: INFECTIVE PULMONARY EXACERBATION OF CYSTIC FIBROSIS
     Dosage: 900 000 Q12H, 1.5 MG/KG, TWO TIMES A DAY
     Route: 042

REACTIONS (2)
  - Paraesthesia [Recovered/Resolved]
  - Neurotoxicity [Recovered/Resolved]
